FAERS Safety Report 9839522 (Version 2)
Quarter: 2014Q1

REPORT INFORMATION
  Report Type: Spontaneous
  Country: CA (occurrence: CA)
  Receive Date: 20140124
  Receipt Date: 20140305
  Transmission Date: 20141002
  Serious: Yes (Other)
  Sender: FDA-Public Use
  Company Number: CA-AMGEN-CANSP2014003999

PATIENT
  Age: 74 Year
  Sex: Female

DRUGS (1)
  1. PROLIA [Suspect]
     Indication: OSTEOPOROSIS POSTMENOPAUSAL
     Dosage: 60 MG, Q6MO
     Route: 058
     Dates: start: 20120215

REACTIONS (8)
  - Myocardial infarction [Unknown]
  - Cardiac pacemaker insertion [Unknown]
  - Post procedural complication [Recovered/Resolved]
  - Pneumothorax [Recovered/Resolved]
  - Syncope [Unknown]
  - Dehydration [Unknown]
  - Blood potassium decreased [Unknown]
  - Fatigue [Unknown]
